FAERS Safety Report 9040776 (Version 1)
Quarter: 2013Q1

REPORT INFORMATION
  Report Type: Spontaneous
  Country: JP (occurrence: JP)
  Receive Date: 20130129
  Receipt Date: 20130129
  Transmission Date: 20140127
  Serious: Yes (Death)
  Sender: FDA-Public Use
  Company Number: JP-JNJFOC-20130111977

PATIENT
  Age: 87 Year
  Sex: Female
  Weight: 52 kg

DRUGS (6)
  1. XARELTO [Suspect]
     Indication: CEREBROVASCULAR ACCIDENT PROPHYLAXIS
     Route: 048
     Dates: start: 20121222, end: 20121223
  2. XARELTO [Suspect]
     Indication: ATRIAL FIBRILLATION
     Route: 048
     Dates: start: 20121222, end: 20121223
  3. EPLERENONE [Concomitant]
     Route: 048
  4. ARTIST [Concomitant]
     Route: 048
  5. ANCARON [Concomitant]
     Route: 048
  6. OPALMON [Concomitant]
     Route: 048

REACTIONS (1)
  - Cardiac failure [Fatal]
